FAERS Safety Report 4998435-1 (Version None)
Quarter: 2006Q2

REPORT INFORMATION
  Report Type: 
  Country: None (occurrence: None)
  Receive Date: 20060510
  Receipt Date: 20060508
  Transmission Date: 20061013
  Serious: Yes (Hospitalization)
  Sender: FDA-Public Use
  Company Number: CA-GLAXOSMITHKLINE-A0604890A

PATIENT
  Age: 58 Year
  Sex: Female
  Weight: 73.9 kg

DRUGS (3)
  1. AVANDIA [Suspect]
     Indication: DIABETES MELLITUS NON-INSULIN-DEPENDENT
     Dosage: 4MG PER DAY
     Route: 048
     Dates: start: 20060308, end: 20060422
  2. AMARYL [Suspect]
     Indication: DIABETES MELLITUS NON-INSULIN-DEPENDENT
     Dosage: 1MG PER DAY
     Route: 048
     Dates: start: 20060308, end: 20060422
  3. CRESTOR [Suspect]
     Indication: DYSLIPIDAEMIA
     Dosage: 20MG PER DAY
     Route: 048
     Dates: start: 20060213, end: 20060422

REACTIONS (9)
  - ALANINE AMINOTRANSFERASE INCREASED [None]
  - BILIARY TRACT DISORDER [None]
  - BLOOD ALKALINE PHOSPHATASE INCREASED [None]
  - BLOOD CREATININE INCREASED [None]
  - CONFUSIONAL STATE [None]
  - DECREASED APPETITE [None]
  - DEHYDRATION [None]
  - GAMMA-GLUTAMYLTRANSFERASE INCREASED [None]
  - HYPOGLYCAEMIA [None]
